FAERS Safety Report 5926901-0 (Version None)
Quarter: 2008Q4

REPORT INFORMATION
  Report Type: 
  Country: None (occurrence: None)
  Receive Date: 20081017
  Receipt Date: 20081010
  Transmission Date: 20090506
  Serious: Yes (Other)
  Sender: FDA-Public Use
  Company Number: 2008AL011147

PATIENT
  Age: 88 Year
  Sex: Female
  Weight: 58.9676 kg

DRUGS (3)
  1. DIGOXIN [Suspect]
     Indication: ATRIAL FIBRILLATION
     Dosage: DAILY, PO; 22 APR (YEAR UNK)
  2. DIGOXIN [Suspect]
     Indication: CARDIAC DISORDER
     Dosage: DAILY, PO; 22 APR (YEAR UNK)
  3. DIGOXIN [Suspect]
     Indication: CARDIAC PACEMAKER INSERTION
     Dosage: DAILY, PO; 22 APR (YEAR UNK)

REACTIONS (3)
  - DRUG LEVEL INCREASED [None]
  - HAEMORRHAGE [None]
  - URINARY BLADDER HAEMORRHAGE [None]
